FAERS Safety Report 9855723 (Version 1)
Quarter: 2014Q1

REPORT INFORMATION
  Report Type: Spontaneous
  Country: ZA (occurrence: ZA)
  Receive Date: 20140130
  Receipt Date: 20140130
  Transmission Date: 20141002
  Serious: Yes (Other)
  Sender: FDA-Public Use
  Company Number: PHHY2014ZA009598

PATIENT
  Sex: Female

DRUGS (1)
  1. AFINITOR [Suspect]
     Dosage: 10 MG, DAY
     Dates: start: 201311, end: 201401

REACTIONS (6)
  - Liver disorder [Unknown]
  - Hepatomegaly [Unknown]
  - Nausea [Unknown]
  - Hepatic enzyme increased [Unknown]
  - Tumour marker increased [Unknown]
  - Drug ineffective [Unknown]
